FAERS Safety Report 7899842-X (Version None)
Quarter: 2011Q4

REPORT INFORMATION
  Report Type: 
  Country: None (occurrence: None)
  Receive Date: 20111107
  Receipt Date: 20110926
  Transmission Date: 20120403
  Serious: No
  Sender: FDA-Public Use
  Company Number: US-AMGEN-USASP2011038625

PATIENT
  Age: 24 Year
  Sex: Male
  Weight: 77.098 kg

DRUGS (2)
  1. ENBREL [Suspect]
     Indication: PSORIASIS
     Dosage: 50 MG, 2 TIMES/WK
     Route: 058
     Dates: start: 20110706
  2. CLOBETASOL [Concomitant]
     Indication: PSORIASIS
     Dosage: UNK
     Dates: start: 20110607

REACTIONS (6)
  - OROPHARYNGEAL PAIN [None]
  - APHTHOUS STOMATITIS [None]
  - NASOPHARYNGITIS [None]
  - LARYNGITIS [None]
  - COUGH [None]
  - PYREXIA [None]
